FAERS Safety Report 11146339 (Version 1)
Quarter: 2015Q2

REPORT INFORMATION
  Report Type: Spontaneous
  Country: US (occurrence: US)
  Receive Date: 20150528
  Receipt Date: 20150528
  Transmission Date: 20150821
  Serious: Yes (Other)
  Sender: FDA-Public Use
  Company Number: US-PFIZER INC-2015171949

PATIENT
  Age: 85 Year
  Sex: Male
  Weight: 72.56 kg

DRUGS (11)
  1. ZESTRIL [Concomitant]
     Active Substance: LISINOPRIL
     Dosage: 5 MG, DAILY
     Route: 048
  2. PRINIVIL [Concomitant]
     Active Substance: LISINOPRIL
     Dosage: 5 MG, DAILY
     Route: 048
  3. VITAMIN D [Concomitant]
     Active Substance: CHOLECALCIFEROL
     Dosage: 1000 IU, DAILY
     Route: 048
  4. BENADRYL [Concomitant]
     Active Substance: DIPHENHYDRAMINE HYDROCHLORIDE
     Dosage: 25 MG, NIGTHLY AS NEEDED
     Route: 048
  5. METAMUCIL /00091301/ [Concomitant]
     Dosage: UNK (TAKE BY MOUTH)
     Route: 048
  6. GLUCOSAMINE CHONDROITIN MSM [Concomitant]
     Dosage: UNK
     Route: 048
  7. IBRANCE [Suspect]
     Active Substance: PALBOCICLIB
     Indication: PLEOMORPHIC LIPOSARCOMA
     Dosage: 125 MG, 1 CAPSULE DAILY WITH FOOD ON DAYS 1-21 OF A 28 DAY CYCLE
     Route: 048
     Dates: start: 20150406
  8. TRAZODONE HYDROCHLORIDE. [Concomitant]
     Active Substance: TRAZODONE HYDROCHLORIDE
     Dosage: 50 MG, DAILY (NIGHTLY)
     Route: 048
  9. TUMS [Concomitant]
     Active Substance: CALCIUM CARBONATE
     Dosage: 500 MG, DAILY (1 TABLET DAILY)
     Route: 048
  10. FISH OIL [Concomitant]
     Active Substance: FISH OIL
     Dosage: UNK
  11. LIPITOR [Concomitant]
     Active Substance: ATORVASTATIN CALCIUM
     Dosage: 10 MG, DAILY
     Route: 048

REACTIONS (2)
  - Product use issue [Unknown]
  - Neutrophil count decreased [Unknown]
